FAERS Safety Report 5405284-9 (Version None)
Quarter: 2007Q3

REPORT INFORMATION
  Report Type: 
  Country: None (occurrence: None)
  Receive Date: 20070803
  Receipt Date: 20070730
  Transmission Date: 20080115
  Serious: Yes (Other)
  Sender: FDA-Public Use
  Company Number: A0667868A

PATIENT
  Age: 1 Year
  Sex: Male
  Weight: 8 kg

DRUGS (4)
  1. ADVAIR DISKUS 100/50 [Suspect]
     Indication: BRONCHITIS
     Route: 055
     Dates: start: 20070726
  2. PHENOBARBITAL TAB [Concomitant]
     Dates: start: 20061201
  3. CLOBAZAM [Concomitant]
     Dates: start: 20061201
  4. VALPROIC ACID [Concomitant]
     Dosage: 250MG THREE TIMES PER DAY
     Dates: start: 20070401

REACTIONS (1)
  - CONVULSION [None]
